FAERS Safety Report 12930490 (Version 1)
Quarter: 2016Q4

REPORT INFORMATION
  Report Type: Spontaneous
  Country: US (occurrence: US)
  Receive Date: 20161111
  Receipt Date: 20161111
  Transmission Date: 20170207
  Serious: Yes (Hospitalization)
  Sender: FDA-Public Use
  Company Number: None

PATIENT
  Age: 56 Year
  Sex: Female
  Weight: 51.9 kg

DRUGS (2)
  1. 5-FU [Suspect]
     Active Substance: FLUOROURACIL
     Indication: PANCREATIC CARCINOMA
     Dosage: CHEMORADIATION 5DAY/WEEK EXTERNAL BEAM?5-FU 5DAY/WEEK IV PUMP
     Route: 042
     Dates: start: 20160607, end: 20160715
  2. GEMCITABINE [Suspect]
     Active Substance: GEMCITABINE\GEMCITABINE HYDROCHLORIDE
     Indication: PANCREATIC CARCINOMA
     Dosage: GEMCITABINE 28DAYCYLE IV?NAB-PACLITAXEL 28DAYCYCLE IV
     Route: 042
     Dates: start: 20160330, end: 20160511

REACTIONS (6)
  - Weight decreased [None]
  - Failure to thrive [None]
  - Depression [None]
  - Nausea [None]
  - Blood albumin decreased [None]
  - Hypophagia [None]

NARRATIVE: CASE EVENT DATE: 20161026
